FAERS Safety Report 10504666 (Version 2)
Quarter: 2014Q4

REPORT INFORMATION
  Report Type: Spontaneous
  Country: IN (occurrence: None)
  Receive Date: 20141006
  Receipt Date: 20141014
  Transmission Date: 20150528
  Serious: Yes (Hospitalization)
  Sender: FDA-Public Use
  Company Number: 2014-IN-012738

PATIENT
  Age: 64 Year
  Sex: Female

DRUGS (1)
  1. LUVOX CR [Suspect]
     Active Substance: FLUVOXAMINE MALEATE
     Indication: OBSESSIVE-COMPULSIVE DISORDER

REACTIONS (6)
  - Anxiety [None]
  - Hypertension [None]
  - Insomnia [None]
  - Metabolic acidosis [None]
  - Somnolence [None]
  - Neuroleptic malignant syndrome [None]
